FAERS Safety Report 4736644-7 (Version None)
Quarter: 2005Q3

REPORT INFORMATION
  Report Type: 
  Country: None (occurrence: None)
  Receive Date: 20050808
  Receipt Date: 20050602
  Transmission Date: 20060218
  Serious: Yes (Other)
  Sender: FDA-Public Use
  Company Number: 2005CG01069

PATIENT
  Age: 24165 Day
  Sex: Male
  Weight: 90 kg

DRUGS (6)
  1. NEXIUM [Suspect]
     Indication: GASTROOESOPHAGEAL REFLUX DISEASE
     Route: 048
     Dates: start: 20050506, end: 20050510
  2. DIAMICRON [Concomitant]
     Indication: DIABETES MELLITUS NON-INSULIN-DEPENDENT
  3. GLUCOPHAGE [Concomitant]
     Indication: DIABETES MELLITUS NON-INSULIN-DEPENDENT
  4. NOVOMIX [Concomitant]
     Indication: DIABETES MELLITUS NON-INSULIN-DEPENDENT
  5. FENOFIBRATE [Concomitant]
     Indication: DYSLIPIDAEMIA
  6. MICARDIS [Concomitant]
     Indication: HYPERTENSION

REACTIONS (1)
  - BLOOD GLUCOSE INCREASED [None]
